APPROVED DRUG PRODUCT: TAFINLAR
Active Ingredient: DABRAFENIB MESYLATE
Strength: EQ 75MG BASE
Dosage Form/Route: CAPSULE;ORAL
Application: N202806 | Product #002
Applicant: NOVARTIS PHARMACEUTICALS CORP
Approved: May 29, 2013 | RLD: Yes | RS: Yes | Type: RX

PATENTS:
Patent 8415345 | Expires: Jan 20, 2030
Patent 8415345 | Expires: Jan 20, 2030
Patent 8415345 | Expires: Jan 20, 2030
Patent 8415345 | Expires: Jan 20, 2030
Patent 8703781 | Expires: Oct 15, 2030
Patent 8703781 | Expires: Oct 15, 2030
Patent 9233956 | Expires: May 4, 2029
Patent 9233956 | Expires: May 4, 2029
Patent 7994185 | Expires: Jan 20, 2030
Patent 7994185 | Expires: Jan 20, 2030
Patent 7994185 | Expires: Jan 20, 2030
Patent 8703781 | Expires: Oct 15, 2030
Patent 9233956 | Expires: May 4, 2029
Patent 10869869 | Expires: Aug 30, 2033
Patent 8952018 | Expires: Oct 15, 2030
Patent 8703781 | Expires: Oct 15, 2030
Patent 7994185 | Expires: Jan 20, 2030
Patent 9233956 | Expires: May 4, 2029
Patent 7994185*PED | Expires: Jul 20, 2030
Patent 8415345*PED | Expires: Jul 20, 2030
Patent 9233956*PED | Expires: Nov 4, 2029
Patent 8952018*PED | Expires: Apr 15, 2031
Patent 8703781*PED | Expires: Apr 15, 2031
Patent 10869869*PED | Expires: Feb 28, 2034

EXCLUSIVITY:
Code: PED | Date: Sep 16, 2030
Code: PED | Date: Sep 16, 2026
Code: I-908 | Date: Mar 16, 2026
Code: ODE-428 | Date: Mar 16, 2030